FAERS Safety Report 25472278 (Version 2)
Quarter: 2025Q3

REPORT INFORMATION
  Report Type: Report from Study
  Country: US (occurrence: US)
  Receive Date: 20250624
  Receipt Date: 20250728
  Transmission Date: 20251021
  Serious: No
  Sender: ACADIA PHARMACEUTICALS
  Company Number: US-ACADIA PHARMACEUTICALS INC.-ACA-2025-TRF-007377

PATIENT
  Sex: Male
  Weight: 99.21 kg

DRUGS (5)
  1. DAYBUE [Suspect]
     Active Substance: TROFINETIDE
     Indication: Rett syndrome
     Dosage: 3 MILLILITER, BID
     Route: 048
     Dates: start: 202506
  2. DAYBUE [Suspect]
     Active Substance: TROFINETIDE
     Dosage: 1 MILLILITER, BID
     Route: 048
  3. CARBAMAZEPINE [Concomitant]
     Active Substance: CARBAMAZEPINE
  4. LEVETIRACETAM [Concomitant]
     Active Substance: LEVETIRACETAM
  5. CLONAZEPAM [Concomitant]
     Active Substance: CLONAZEPAM

REACTIONS (3)
  - Regurgitation [Not Recovered/Not Resolved]
  - Drug intolerance [Unknown]
  - Underdose [Not Recovered/Not Resolved]
